FAERS Safety Report 7479080-5 (Version None)
Quarter: 2011Q2

REPORT INFORMATION
  Report Type: 
  Country: None (occurrence: None)
  Receive Date: 20110513
  Receipt Date: 20110502
  Transmission Date: 20111010
  Serious: Yes (Hospitalization, Other)
  Sender: FDA-Public Use
  Company Number: US-MERCK-1012USA02367

PATIENT
  Age: 58 Year
  Sex: Female
  Weight: 68 kg

DRUGS (6)
  1. FOSAMAX [Suspect]
     Indication: OSTEOPOROSIS PROPHYLAXIS
     Route: 048
     Dates: start: 19980101, end: 20001004
  2. FOSAMAX [Suspect]
     Route: 048
     Dates: start: 20010424, end: 20051219
  3. FOSAMAX [Suspect]
     Route: 048
     Dates: start: 20010424, end: 20051219
  4. BONIVA [Suspect]
     Indication: OSTEOPENIA
     Route: 051
     Dates: start: 20060101
  5. SYNTHROID [Concomitant]
     Indication: HYPOTHYROIDISM
     Route: 065
     Dates: start: 19910101
  6. FOSAMAX [Suspect]
     Indication: OSTEOPENIA
     Route: 048
     Dates: start: 19980101, end: 20001004

REACTIONS (20)
  - INSOMNIA [None]
  - HYPERTENSION [None]
  - FEMUR FRACTURE [None]
  - HIP FRACTURE [None]
  - DEPRESSION [None]
  - ANAEMIA POSTOPERATIVE [None]
  - HAEMATURIA [None]
  - SUPRAVENTRICULAR TACHYCARDIA [None]
  - DIVERTICULITIS [None]
  - LOW TURNOVER OSTEOPATHY [None]
  - FOOT FRACTURE [None]
  - FRACTURE NONUNION [None]
  - POST PROCEDURAL CONSTIPATION [None]
  - VAGINAL FISTULA [None]
  - POSTOPERATIVE FEVER [None]
  - PUBIS FRACTURE [None]
  - SPINAL OSTEOARTHRITIS [None]
  - HYPERCHOLESTEROLAEMIA [None]
  - JOINT INSTABILITY [None]
  - GASTROINTESTINAL ULCER [None]
